FAERS Safety Report 5726098-6 (Version None)
Quarter: 2008Q2

REPORT INFORMATION
  Report Type: 
  Country: None (occurrence: None)
  Receive Date: 20080501
  Receipt Date: 20080501
  Transmission Date: 20081010
  Serious: Yes (Hospitalization, Other)
  Sender: FDA-Public Use
  Company Number: None

PATIENT
  Age: 17 Year
  Sex: Female
  Weight: 56.6996 kg

DRUGS (1)
  1. TRILEPTAL [Suspect]
     Indication: EPILEPSY
     Dates: start: 20071103, end: 20071111

REACTIONS (2)
  - GRAND MAL CONVULSION [None]
  - THERAPEUTIC RESPONSE UNEXPECTED WITH DRUG SUBSTITUTION [None]
